FAERS Safety Report 6834201-X (Version None)
Quarter: 2010Q3

REPORT INFORMATION
  Report Type: 
  Country: None (occurrence: None)
  Receive Date: 20100712
  Receipt Date: 20070411
  Transmission Date: 20110219
  Serious: No
  Sender: FDA-Public Use
  Company Number: US-PFIZER INC-2007030402

PATIENT
  Sex: Female

DRUGS (2)
  1. CHANTIX [Suspect]
     Indication: SMOKING CESSATION THERAPY
  2. NICOTINE [Concomitant]

REACTIONS (3)
  - ABNORMAL DREAMS [None]
  - JOINT CREPITATION [None]
  - NAUSEA [None]
